FAERS Safety Report 9738718 (Version 6)
Quarter: 2014Q3

REPORT INFORMATION
  Report Type: Report from Study
  Country: IT (occurrence: IT)
  Receive Date: 20131209
  Receipt Date: 20140709
  Transmission Date: 20150326
  Serious: Yes (Hospitalization)
  Sender: FDA-Public Use
  Company Number: IT-ROCHE-791515

PATIENT
  Age: 65 Year
  Sex: Female
  Weight: 55 kg

DRUGS (40)
  1. BENDAMUSTINE [Suspect]
     Active Substance: BENDAMUSTINE
     Indication: NON-HODGKIN^S LYMPHOMA UNSPECIFIED HISTOLOGY INDOLENT
     Dosage: DATE OF LAST DOSE PRIOR TO SAE:07/JUL/2011,?FREQUENCY : DAY 1 TO 2 EVERY 28 DAYS.
     Route: 042
     Dates: start: 20110706, end: 20120110
  2. BLOOD TRANSFUSION [Concomitant]
     Active Substance: WHOLE BLOOD
     Dosage: 1 UNIT RED BLOOD CELLS CONCENTRATE
     Route: 065
     Dates: start: 20110812, end: 20110812
  3. LEVOSULPIRIDE [Concomitant]
     Active Substance: LEVOSULPIRIDE
     Indication: PROPHYLAXIS OF NAUSEA AND VOMITING
     Route: 065
     Dates: start: 20110705, end: 20110810
  4. HYDROCORTISONE SUCCINATE [Concomitant]
     Indication: PYREXIA
     Route: 065
     Dates: start: 20110712, end: 20110712
  5. BLOOD TRANSFUSION [Concomitant]
     Active Substance: WHOLE BLOOD
     Dosage: 8 UNITS OF PLATELET CONCENTRATE
     Route: 065
     Dates: start: 20110723, end: 20110723
  6. ALIZAPRIDE HCL [Concomitant]
     Indication: NAUSEA
     Route: 065
     Dates: start: 20110712, end: 20110712
  7. NYSTATIN. [Concomitant]
     Active Substance: NYSTATIN
     Indication: STOMATITIS
     Route: 065
     Dates: start: 20110811, end: 20111009
  8. OBINUTUZUMAB [Suspect]
     Active Substance: OBINUTUZUMAB
     Indication: NON-HODGKIN^S LYMPHOMA UNSPECIFIED HISTOLOGY INDOLENT
     Dosage: FREQUENCY : DAYS1,8,15; DATE OF LAST DOSE PRIOR TO SAE:04/AUG/2011 (1000 MG) AND 07/JUL/2011 (500 MG
     Route: 042
  9. OBINUTUZUMAB [Suspect]
     Active Substance: OBINUTUZUMAB
     Route: 042
  10. IBUPROPHENUM [Concomitant]
     Active Substance: IBUPROFEN
     Indication: PAIN
     Route: 065
     Dates: start: 20110722, end: 20110722
  11. BLOOD TRANSFUSION [Concomitant]
     Active Substance: WHOLE BLOOD
     Dosage: 1 UNIT RED BLOOD CELLS CONCENTRATE
     Route: 065
     Dates: start: 20110722, end: 20110722
  12. ISONIAZIDE [Concomitant]
     Active Substance: ISONIAZID
     Indication: PROPHYLAXIS
     Route: 065
     Dates: start: 20110705, end: 20140411
  13. LYSINE ACETYLSALICYLATE [Concomitant]
     Active Substance: ASPIRIN LYSINE
     Indication: THROMBOSIS PROPHYLAXIS
     Route: 065
     Dates: start: 20110816, end: 20111128
  14. ONYSTER [Concomitant]
     Indication: LIMB INJURY
     Route: 065
     Dates: start: 20110810, end: 20110819
  15. TIAMAZOL [Concomitant]
     Indication: HYPERTHYROIDISM
     Route: 065
     Dates: start: 20110616, end: 20140411
  16. EPOETIN BETA [Concomitant]
     Active Substance: ERYTHROPOIETIN
     Route: 065
     Dates: start: 20110822, end: 20111003
  17. GABAPENTIN. [Concomitant]
     Active Substance: GABAPENTIN
     Indication: NEURALGIA
     Route: 065
     Dates: start: 20110722, end: 20140404
  18. TRAMADOL HCL [Concomitant]
     Active Substance: TRAMADOL HYDROCHLORIDE
     Indication: PAIN
     Route: 065
     Dates: start: 20110724, end: 20110724
  19. IBUPROFENE [Concomitant]
     Active Substance: IBUPROFEN
     Indication: MUSCULOSKELETAL PAIN
     Route: 065
     Dates: start: 20110822, end: 20110826
  20. X-PREP [Concomitant]
     Route: 065
     Dates: start: 20110711, end: 20110715
  21. MORPHINE [Concomitant]
     Active Substance: MORPHINE
     Indication: PAIN
     Route: 065
     Dates: start: 20110731, end: 20110731
  22. LANSOPRAZOLE. [Concomitant]
     Active Substance: LANSOPRAZOLE
     Indication: PROPHYLAXIS
     Route: 065
     Dates: start: 20110704
  23. OXYCODONE HYDROCHLORIDE. [Concomitant]
     Active Substance: OXYCODONE HYDROCHLORIDE
     Indication: PAIN
     Route: 065
     Dates: start: 20110801, end: 20140404
  24. FUROSEMIDE. [Concomitant]
     Active Substance: FUROSEMIDE
     Indication: POLYURIA
     Route: 065
     Dates: end: 20110713
  25. ALLOPURINOL. [Concomitant]
     Active Substance: ALLOPURINOL
     Indication: PROPHYLAXIS
     Route: 065
     Dates: end: 20120416
  26. BLOOD TRANSFUSION [Concomitant]
     Active Substance: WHOLE BLOOD
     Dosage: 8 UNITS OF PLATELET CONCENTRATE
     Route: 065
     Dates: start: 20110716, end: 20110717
  27. BLOOD TRANSFUSION [Concomitant]
     Active Substance: WHOLE BLOOD
     Dosage: 1 UNIT RED BLOOD CELLS CONCENTRATE
     Route: 065
     Dates: start: 20110726, end: 20110726
  28. BLOOD TRANSFUSION [Concomitant]
     Active Substance: WHOLE BLOOD
     Dosage: 1 UNIT RED BLOOD CELLS CONCENTRATE
     Route: 065
     Dates: start: 20110729, end: 20110729
  29. FLUCONAZOLE. [Concomitant]
     Active Substance: FLUCONAZOLE
     Indication: PNEUMONITIS
     Route: 065
     Dates: start: 20110811, end: 20110906
  30. FUROSEMIDE. [Concomitant]
     Active Substance: FUROSEMIDE
     Route: 065
     Dates: start: 20110716, end: 20110716
  31. FLUCONAZOLE. [Concomitant]
     Active Substance: FLUCONAZOLE
     Route: 065
     Dates: start: 20110801, end: 20110803
  32. MORPHINE [Concomitant]
     Active Substance: MORPHINE
     Route: 065
     Dates: start: 20110725, end: 20110725
  33. BLOOD TRANSFUSION [Concomitant]
     Active Substance: WHOLE BLOOD
     Indication: PANCYTOPENIA
     Dosage: 8 UNITS OF PLATELET CONCENTRATE AND 1 UNIT RED BLOOD CELLS CONCENTRATE
     Route: 065
     Dates: start: 20110715, end: 20110715
  34. HYDROCHLOROTHIAZIDE. [Concomitant]
     Active Substance: HYDROCHLOROTHIAZIDE
     Indication: HYPERTENSION
     Route: 065
     Dates: end: 20110816
  35. SPIRONOLACTONE. [Concomitant]
     Active Substance: SPIRONOLACTONE
     Indication: HYPERTENSION
     Route: 065
     Dates: start: 20110811
  36. BLOOD TRANSFUSION [Concomitant]
     Active Substance: WHOLE BLOOD
     Indication: ANAEMIA
     Dosage: 1 UNIT RED BLOOD CELLS CONCENTRATE
     Route: 065
     Dates: start: 20110712, end: 20110712
  37. BLOOD TRANSFUSION [Concomitant]
     Active Substance: WHOLE BLOOD
     Indication: THROMBOCYTOPENIA
     Dosage: 8 UNITS OF PLATELET CONCENTRATE
     Route: 065
     Dates: start: 20110713, end: 20110713
  38. GENTAMICIN [Concomitant]
     Active Substance: GENTAMICIN
     Indication: LIMB INJURY
     Route: 065
     Dates: start: 20110810, end: 20110819
  39. FLUCONAZOLE. [Concomitant]
     Active Substance: FLUCONAZOLE
     Indication: INFECTION PROPHYLAXIS
     Route: 065
     Dates: end: 20110721
  40. X-PREP [Concomitant]
     Route: 065
     Dates: start: 20110723, end: 20110810

REACTIONS (2)
  - Pneumonia [Recovered/Resolved]
  - Neutropenia [Recovered/Resolved]

NARRATIVE: CASE EVENT DATE: 20110712
